FAERS Safety Report 7348043-2 (Version None)
Quarter: 2011Q1

REPORT INFORMATION
  Report Type: 
  Country: None (occurrence: None)
  Receive Date: 20110311
  Receipt Date: 20110302
  Transmission Date: 20110831
  Serious: Yes (Other)
  Sender: FDA-Public Use
  Company Number: CA-JNJFOC-20110302185

PATIENT
  Sex: Female
  Weight: 89.5 kg

DRUGS (4)
  1. REMICADE [Suspect]
     Indication: CROHN'S DISEASE
     Route: 042
  2. BENADRYL [Concomitant]
     Indication: PREMEDICATION
     Route: 042
  3. HYDROCORTISONE [Concomitant]
     Indication: PREMEDICATION
     Route: 042
  4. ACETAMINOPHEN [Concomitant]
     Indication: PREMEDICATION

REACTIONS (7)
  - BLOOD PRESSURE INCREASED [None]
  - SWELLING FACE [None]
  - PARAESTHESIA [None]
  - CHEST PAIN [None]
  - ERYTHEMA [None]
  - NAUSEA [None]
  - DYSPNOEA [None]
